FAERS Safety Report 22593434 (Version 2)
Quarter: 2023Q2

REPORT INFORMATION
  Report Type: Report from Study
  Country: US (occurrence: US)
  Receive Date: 20230613
  Receipt Date: 20230615
  Transmission Date: 20230721
  Serious: No
  Sender: FDA-Public Use
  Company Number: US-002147023-NVSC2023US133151

PATIENT
  Sex: Female

DRUGS (9)
  1. AMOXICILLIN [Suspect]
     Active Substance: AMOXICILLIN
     Indication: Pustular psoriasis
     Route: 065
  2. COSENTYX [Suspect]
     Active Substance: SECUKINUMAB
     Indication: Pustular psoriasis
     Dosage: 300 MG
     Route: 058
  3. TRIAMCINOLONE [Suspect]
     Active Substance: TRIAMCINOLONE
     Indication: Pustular psoriasis
     Route: 065
  4. LIDOCAINE [Suspect]
     Active Substance: LIDOCAINE
     Indication: Pustular psoriasis
     Dosage: UNK
     Route: 065
  5. METOPROLOL [Suspect]
     Active Substance: METOPROLOL
     Indication: Pustular psoriasis
     Dosage: UNK (METOPROLOL SUCCINATE)
     Route: 065
  6. ACITRETIN [Suspect]
     Active Substance: ACITRETIN
     Indication: Pustular psoriasis
     Dosage: UNK
     Route: 065
  7. TERBINAFINE [Suspect]
     Active Substance: TERBINAFINE
     Indication: Pustular psoriasis
     Dosage: UNK
     Route: 065
  8. PREDNISONE [Suspect]
     Active Substance: PREDNISONE
     Indication: Pustular psoriasis
     Dosage: UNK
     Route: 065
  9. ALCOHOL [Suspect]
     Active Substance: ALCOHOL
     Indication: Pustular psoriasis
     Dosage: UNK
     Route: 065

REACTIONS (9)
  - Pustular psoriasis [Unknown]
  - Dermatitis [Unknown]
  - Rash [Unknown]
  - Rash pruritic [Unknown]
  - Papule [Unknown]
  - Pyrexia [Unknown]
  - Oropharyngeal pain [Unknown]
  - Product use in unapproved indication [Unknown]
  - Drug ineffective [Unknown]
